FAERS Safety Report 9376555 (Version 1)
Quarter: 2013Q3

REPORT INFORMATION
  Report Type: Spontaneous
  Country: US (occurrence: US)
  Receive Date: 20130701
  Receipt Date: 20130701
  Transmission Date: 20140515
  Serious: No
  Sender: FDA-Public Use
  Company Number: US-ASTRAZENECA-2013SE48073

PATIENT
  Age: 79 Year
  Sex: Female
  Weight: 52.6 kg

DRUGS (5)
  1. SEROQUEL XR [Suspect]
     Indication: DEPRESSION
     Route: 048
     Dates: start: 201306
  2. SEROQUEL XR [Suspect]
     Indication: DEPRESSION
     Route: 048
     Dates: start: 201306
  3. LOSARTAN [Concomitant]
     Indication: HYPERTENSION
     Dosage: UNKNOWN DOSE, DAILY
  4. METOPROLOL [Concomitant]
     Indication: HYPERTENSION
  5. SIMVASTATIN [Concomitant]
     Indication: BLOOD CHOLESTEROL ABNORMAL

REACTIONS (3)
  - Rash [Unknown]
  - Erythema [Unknown]
  - Blood glucose increased [Unknown]
